FAERS Safety Report 9391077 (Version 1)
Quarter: 2013Q3

REPORT INFORMATION
  Report Type: Spontaneous
  Country: US (occurrence: US)
  Receive Date: 20130709
  Receipt Date: 20130709
  Transmission Date: 20140515
  Serious: No
  Sender: FDA-Public Use
  Company Number: US-PFIZER INC-2013200286

PATIENT
  Sex: Male

DRUGS (2)
  1. ADVIL [Suspect]
     Dosage: 200 MG, UNK
     Route: 048
  2. ADVIL [Suspect]
     Dosage: 400 MG, UNK
     Route: 048
     Dates: start: 20130606

REACTIONS (2)
  - Extra dose administered [Unknown]
  - Euphoric mood [Unknown]
